FAERS Safety Report 7550095-1 (Version None)
Quarter: 2011Q2

REPORT INFORMATION
  Report Type: 
  Country: None (occurrence: None)
  Receive Date: 20110615
  Receipt Date: 20110608
  Transmission Date: 20111010
  Serious: Yes (Hospitalization)
  Sender: FDA-Public Use
  Company Number: US-ASTRAZENECA-2011SE35146

PATIENT
  Sex: Male

DRUGS (1)
  1. TOPROL-XL [Suspect]
     Route: 048
     Dates: start: 20080101

REACTIONS (1)
  - CIRCULATORY COLLAPSE [None]
